FAERS Safety Report 6626292-6 (Version None)
Quarter: 2010Q1

REPORT INFORMATION
  Report Type: 
  Country: None (occurrence: None)
  Receive Date: 20100310
  Receipt Date: 20090316
  Transmission Date: 20100710
  Serious: No
  Sender: FDA-Public Use
  Company Number: US-ABBOTT-09P-163-0564718-00

PATIENT
  Age: 29 Year
  Sex: Female
  Weight: 64.468 kg

DRUGS (8)
  1. LUPRON DEPOT [Suspect]
     Indication: PELVIC PAIN
     Dates: start: 20081002, end: 20090109
  2. CYMBALTA [Concomitant]
     Indication: DRUG USE FOR UNKNOWN INDICATION
  3. LOMITICAL [Concomitant]
     Indication: DRUG USE FOR UNKNOWN INDICATION
  4. SERAQUEL [Concomitant]
     Indication: DRUG USE FOR UNKNOWN INDICATION
  5. TYLENOL W/ CODEINE NO. 3 [Concomitant]
     Indication: DRUG USE FOR UNKNOWN INDICATION
  6. ADBACK THERAPY [Concomitant]
     Indication: DRUG USE FOR UNKNOWN INDICATION
  7. REGLAN [Concomitant]
     Indication: DRUG USE FOR UNKNOWN INDICATION
  8. LORTAB [Concomitant]
     Indication: DRUG USE FOR UNKNOWN INDICATION

REACTIONS (1)
  - DRUG INEFFECTIVE [None]
